FAERS Safety Report 19244726 (Version 1)
Quarter: 2021Q2

REPORT INFORMATION
  Report Type: Spontaneous
  Country: PL (occurrence: PL)
  Receive Date: 20210511
  Receipt Date: 20210511
  Transmission Date: 20210717
  Serious: Yes (Other)
  Sender: FDA-Public Use
  Company Number: PL-PFIZER INC-2021473132

PATIENT
  Age: 66 Year
  Sex: Male
  Weight: 49 kg

DRUGS (1)
  1. SUTENT [Suspect]
     Active Substance: SUNITINIB MALATE
     Indication: RENAL CANCER
     Dosage: 50 MG
     Route: 048

REACTIONS (12)
  - Palmar-plantar erythrodysaesthesia syndrome [Unknown]
  - Chronic kidney disease [Unknown]
  - Insomnia [Unknown]
  - Hyperthyroidism [Unknown]
  - Aspartate aminotransferase increased [Unknown]
  - Thrombocytosis [Unknown]
  - Urinary tract infection [Unknown]
  - Blood pressure increased [Unknown]
  - Leukopenia [Unknown]
  - Lymphopenia [Unknown]
  - Chest pain [Unknown]
  - Anaemia [Unknown]
